FAERS Safety Report 9403022 (Version 1)
Quarter: 2013Q3

REPORT INFORMATION
  Report Type: Spontaneous
  Country: US (occurrence: None)
  Receive Date: 20130715
  Receipt Date: 20130715
  Transmission Date: 20140515
  Serious: Yes (Other)
  Sender: FDA-Public Use
  Company Number: None

PATIENT
  Age: 81 Year
  Sex: Female
  Weight: 49.44 kg

DRUGS (10)
  1. CIPROFLOXCIN EYE DROPS [Suspect]
     Indication: INFECTION PROPHYLAXIS
     Dosage: DONT KNOW-DIDNT KEEP, AS NEVER USE AGAIN-EVER! ?DONT REMEMBER 1-DROP- I THINK WAS EVERY 4 HR*S EYE DROPS?USED ONLY TWICE!
     Route: 031
     Dates: start: 20130701, end: 20130701
  2. METOPROLOL-ISOSORBIDE [Concomitant]
  3. PRAVASTATIN [Concomitant]
  4. ALLEGRA [Concomitant]
  5. BENADRYL [Concomitant]
  6. TEMAZAPAN [Concomitant]
  7. CALCIUM [Concomitant]
  8. ZINC [Concomitant]
  9. ASPIRIN [Concomitant]
  10. MAGNESIUN [Concomitant]

REACTIONS (1)
  - Eye pain [None]
